FAERS Safety Report 24168508 (Version 1)
Quarter: 2024Q3

REPORT INFORMATION
  Report Type: Spontaneous
  Country: US (occurrence: None)
  Receive Date: 20240802
  Receipt Date: 20240802
  Transmission Date: 20241016
  Serious: Yes (Other)
  Sender: ASTRAZENECA
  Company Number: 2024A171540

PATIENT
  Sex: Female

DRUGS (1)
  1. TAGRISSO [Suspect]
     Active Substance: OSIMERTINIB
     Route: 048

REACTIONS (6)
  - Device related infection [Unknown]
  - Cough [Unknown]
  - Sputum discoloured [Unknown]
  - Productive cough [Unknown]
  - Infection [Unknown]
  - Stomatitis [Unknown]
